FAERS Safety Report 23973078 (Version 2)
Quarter: 2024Q2

REPORT INFORMATION
  Report Type: Spontaneous
  Country: IT (occurrence: IT)
  Receive Date: 20240613
  Receipt Date: 20240624
  Transmission Date: 20240716
  Serious: Yes (Other)
  Sender: FDA-Public Use
  Company Number: None

PATIENT
  Age: 86 Year
  Sex: Female

DRUGS (10)
  1. LEVOTHYROXINE SODIUM [Suspect]
     Active Substance: LEVOTHYROXINE SODIUM
     Indication: Substance abuse
     Dosage: 5 TABLETS 25 MCG EACH
     Route: 048
     Dates: start: 20240304, end: 20240304
  2. GABAPENTIN [Suspect]
     Active Substance: GABAPENTIN
     Indication: Substance abuse
     Dosage: 15 TABLETS OF 300 MG EACH.
     Route: 048
     Dates: start: 20240304, end: 20240304
  3. SEROQUEL [Suspect]
     Active Substance: QUETIAPINE FUMARATE
     Indication: Substance abuse
     Dosage: 10 TABLETS, 50 MG EACH
     Route: 048
     Dates: start: 20240304, end: 20240304
  4. SITAGLIPTIN PHOSPHATE [Suspect]
     Active Substance: SITAGLIPTIN PHOSPHATE
     Indication: Substance abuse
     Dosage: 5 TABLETS, 100 MG EACH
     Route: 048
     Dates: start: 20240304, end: 20240304
  5. VALPROATE SODIUM [Suspect]
     Active Substance: VALPROATE SODIUM
     Indication: Substance abuse
     Dosage: 5 TABLETS 300 MG EACH
     Route: 048
     Dates: start: 20240304, end: 20240304
  6. RAMIPRIL [Suspect]
     Active Substance: RAMIPRIL
     Indication: Substance abuse
     Dosage: 5 TABLETS 5MG EACH
     Route: 048
     Dates: start: 20240304, end: 20240304
  7. LASIX [Suspect]
     Active Substance: FUROSEMIDE
     Indication: Substance abuse
     Dosage: 5 TABLETS, 25 MG EACH
     Route: 048
     Dates: start: 20240304, end: 20240304
  8. XANAX [Concomitant]
     Active Substance: ALPRAZOLAM
     Indication: Product used for unknown indication
  9. BUPRENORPHINE [Concomitant]
     Active Substance: BUPRENORPHINE\BUPRENORPHINE HYDROCHLORIDE
     Indication: Product used for unknown indication
  10. CITALOPRAM HYDROBROMIDE [Concomitant]
     Active Substance: CITALOPRAM HYDROBROMIDE
     Indication: Product used for unknown indication

REACTIONS (3)
  - Substance abuse [Recovered/Resolved]
  - Disorientation [Recovering/Resolving]
  - Sopor [Recovered/Resolved]

NARRATIVE: CASE EVENT DATE: 20240304
